FAERS Safety Report 5812606-3 (Version None)
Quarter: 2008Q3

REPORT INFORMATION
  Report Type: 
  Country: None (occurrence: None)
  Receive Date: 20080717
  Receipt Date: 20080709
  Transmission Date: 20090109
  Serious: Yes (Hospitalization)
  Sender: FDA-Public Use
  Company Number: CA-JNJFOC-20080702459

PATIENT
  Sex: Male
  Weight: 105.2 kg

DRUGS (14)
  1. REMICADE [Suspect]
     Indication: CROHN'S DISEASE
     Route: 042
  2. IMURAN [Concomitant]
  3. PANTOPRAZOLE SODIUM [Concomitant]
  4. ELAVIL [Concomitant]
  5. CALCIUM [Concomitant]
  6. VITAMIN D [Concomitant]
  7. PLAVIX [Concomitant]
  8. DIABETA [Concomitant]
  9. ACTONEL [Concomitant]
  10. CRESTOR [Concomitant]
  11. LIPIDIL [Concomitant]
  12. LYRICA [Concomitant]
  13. SEROQUEL [Concomitant]
  14. ALTACE [Concomitant]

REACTIONS (1)
  - APPENDICITIS [None]
